FAERS Safety Report 6569171-5 (Version None)
Quarter: 2010Q1

REPORT INFORMATION
  Report Type: 
  Country: None (occurrence: None)
  Receive Date: 20100201
  Receipt Date: 20100201
  Transmission Date: 20100710
  Serious: No
  Sender: FDA-Public Use
  Company Number: None

PATIENT
  Age: 59 Year
  Sex: Male
  Weight: 94.5 kg

DRUGS (2)
  1. DULOXETINE HYDROCHLORIDE [Suspect]
     Indication: DEPRESSION
     Dosage: 20 MG EVERY DAY PO
     Route: 048
     Dates: start: 20091210, end: 20091223
  2. DULOXETINE HYDROCHLORIDE [Suspect]
     Indication: PAIN
     Dosage: 20 MG EVERY DAY PO
     Route: 048
     Dates: start: 20091210, end: 20091223

REACTIONS (2)
  - CHEST PAIN [None]
  - PARAESTHESIA [None]
